FAERS Safety Report 10356353 (Version 2)
Quarter: 2014Q3

REPORT INFORMATION
  Report Type: Spontaneous
  Country: US (occurrence: US)
  Receive Date: 20140801
  Receipt Date: 20140911
  Transmission Date: 20150326
  Serious: No
  Sender: FDA-Public Use
  Company Number: US-009507513-1407USA009629

PATIENT
  Age: 27 Year
  Sex: Female
  Weight: 68.93 kg

DRUGS (1)
  1. NEXPLANON [Suspect]
     Active Substance: ETONOGESTREL
     Indication: CONTRACEPTION
     Dosage: LEFT UPPER INNER ARM, APPROX.6-7CM FROM MEDIAL EPICONDYLE, INFERIOR TO THE SULCUS BICIPITALIS
     Route: 059
     Dates: start: 20140714, end: 20140718

REACTIONS (2)
  - Device deployment issue [Recovered/Resolved]
  - Implant site bruising [Unknown]

NARRATIVE: CASE EVENT DATE: 20140714
